FAERS Safety Report 11037494 (Version 1)
Quarter: 2015Q2

REPORT INFORMATION
  Report Type: Spontaneous
  Country: GB (occurrence: GB)
  Receive Date: 20150416
  Receipt Date: 20150416
  Transmission Date: 20150821
  Serious: Yes (Life-Threatening, Other)
  Sender: FDA-Public Use
  Company Number: GB-CIPLA LTD.-2015GB02911

PATIENT

DRUGS (19)
  1. GLYCEROPHOSPHOCHOLINE [Concomitant]
  2. LORAZEPAM. [Concomitant]
     Active Substance: LORAZEPAM
  3. PREGABALIN. [Concomitant]
     Active Substance: PREGABALIN
  4. TRIMETHYLGLYCINE [Concomitant]
  5. VITAMIN B COMPLEX [Concomitant]
     Active Substance: CYANOCOBALAMIN\DEXPANTHENOL\NIACINAMIDE\PYRIDOXINE HYDROCHLORIDE\RIBOFLAVIN 5^-PHOSPHATE SODIUM\THIAMINE HYDROCHLORIDE\VITAMIN B COMPLEX
  6. VITAMIN D [Concomitant]
     Active Substance: CHOLECALCIFEROL
  7. ZAPAIN [Concomitant]
     Active Substance: ACETAMINOPHEN\CODEINE PHOSPHATE
  8. ZOPICLONE [Concomitant]
     Active Substance: ZOPICLONE
  9. FOLIC ACID. [Concomitant]
     Active Substance: FOLIC ACID
  10. IBUPROFEN. [Concomitant]
     Active Substance: IBUPROFEN
  11. L-CARNITINE FUMARATE [Concomitant]
  12. OMEGA-3 FISH OIL [Concomitant]
     Active Substance: FISH OIL\OMEGA-3 FATTY ACIDS
  13. SERTRALINE [Suspect]
     Active Substance: SERTRALINE HYDROCHLORIDE
     Indication: DEPRESSION
     Dosage: 50-200MG
     Route: 048
  14. HYOSCINE BUTYLBROMIDE [Concomitant]
     Active Substance: BUTYLSCOPOLAMINE
  15. BISACODYL. [Concomitant]
     Active Substance: BISACODYL
  16. TRYPTOPHAN [Concomitant]
     Active Substance: TRYPTOPHAN
  17. TRAMADOL [Concomitant]
     Active Substance: TRAMADOL
  18. DIAZEPAM. [Concomitant]
     Active Substance: DIAZEPAM
  19. PHOSPHATIDYLSERINE [Concomitant]

REACTIONS (5)
  - Personality change [Recovering/Resolving]
  - Suicidal ideation [Not Recovered/Not Resolved]
  - Hostility [Not Recovered/Not Resolved]
  - Self injurious behaviour [Unknown]
  - Tearfulness [Unknown]
